FAERS Safety Report 7824766-3 (Version None)
Quarter: 2011Q4

REPORT INFORMATION
  Report Type: 
  Country: None (occurrence: None)
  Receive Date: 20111019
  Receipt Date: 20110121
  Transmission Date: 20120403
  Serious: No
  Sender: FDA-Public Use
  Company Number: US-BRISTOL-MYERS SQUIBB COMPANY-15432230

PATIENT
  Age: 44 Year
  Sex: Female
  Weight: 107 kg

DRUGS (2)
  1. LISINOPRIL AND HYDROCHLOROTHIAZIDE [Concomitant]
  2. AVALIDE [Suspect]
     Indication: HYPERTENSION
     Dosage: 1DF=150MG+12.5 MG(AUG2010-SEP2010), 325MG+25MG AND SPLITTING THE PILLS
     Dates: start: 20100801

REACTIONS (3)
  - DIARRHOEA [None]
  - ABDOMINAL PAIN UPPER [None]
  - URINE ODOUR ABNORMAL [None]
